FAERS Safety Report 21256023 (Version 1)
Quarter: 2022Q3

REPORT INFORMATION
  Report Type: Spontaneous
  Country: US (occurrence: US)
  Receive Date: 20220825
  Receipt Date: 20220825
  Transmission Date: 20221026
  Serious: Yes (Life-Threatening, Hospitalization, Other)
  Sender: FDA-Public Use
  Company Number: US-Emergent Biosolutions-22000169

PATIENT

DRUGS (4)
  1. NARCAN [Suspect]
     Active Substance: NALOXONE HYDROCHLORIDE
     Indication: Anaphylactic shock
     Dosage: 4 MILLIGRAM
     Route: 045
     Dates: start: 20200217, end: 20200217
  2. NARCAN [Suspect]
     Active Substance: NALOXONE HYDROCHLORIDE
     Dosage: 4 MILLIGRAM
     Route: 045
     Dates: start: 20200217, end: 20200217
  3. NARCAN [Suspect]
     Active Substance: NALOXONE HYDROCHLORIDE
     Dosage: 4 MILLIGRAM
     Route: 045
     Dates: start: 20200217, end: 20200217
  4. NARCAN [Suspect]
     Active Substance: NALOXONE HYDROCHLORIDE
     Dosage: 4 MILLIGRAM
     Route: 045
     Dates: start: 20220101, end: 20220101

REACTIONS (8)
  - Cardiac arrest [Unknown]
  - Cerebrovascular accident [Unknown]
  - Resuscitation [Unknown]
  - Coma [Unknown]
  - Cardiac disorder [Unknown]
  - Heart alternation [Recovered/Resolved]
  - Generalised tonic-clonic seizure [Unknown]
  - Traumatic tooth displacement [Unknown]

NARRATIVE: CASE EVENT DATE: 20200217
